FAERS Safety Report 9066900 (Version 1)
Quarter: 2013Q1

REPORT INFORMATION
  Report Type: Report from Study
  Country: US (occurrence: US)
  Receive Date: 20130131
  Receipt Date: 20130131
  Transmission Date: 20140127
  Serious: No
  Sender: FDA-Public Use
  Company Number: US-ABBOTT-12P-163-1008203-00

PATIENT
  Age: 49 None
  Sex: Female
  Weight: 66.74 kg

DRUGS (10)
  1. HUMIRA [Suspect]
     Indication: PSORIATIC ARTHROPATHY
     Dates: start: 201206, end: 201209
  2. HUMIRA [Suspect]
     Dates: start: 201209, end: 201211
  3. ABILIFY [Concomitant]
     Indication: DEPRESSION
     Dosage: 2 MG DAILY
  4. NAPROXEN [Concomitant]
     Indication: PSORIATIC ARTHROPATHY
     Dosage: 500 MG DAILY
  5. ZOLOFT [Concomitant]
     Indication: DEPRESSION
     Dosage: 200 MG DAILY
  6. LORAZEPAM [Concomitant]
     Indication: ANXIETY
     Dosage: AT NIGHT
  7. NEURONTIN [Concomitant]
     Indication: ANXIETY
  8. ENBREL [Concomitant]
     Indication: RHEUMATOID ARTHRITIS
     Dosage: 2 DOSES SO FAR
     Dates: start: 201212
  9. ENBREL [Concomitant]
     Indication: PSORIATIC ARTHROPATHY
  10. VITAMIN D [Concomitant]
     Indication: VITAMIN SUPPLEMENTATION

REACTIONS (10)
  - Oral pain [Not Recovered/Not Resolved]
  - Drug ineffective [Not Recovered/Not Resolved]
  - Stomatitis [Not Recovered/Not Resolved]
  - Furuncle [Not Recovered/Not Resolved]
  - Skin lesion [Not Recovered/Not Resolved]
  - Staphylococcal infection [Unknown]
  - Erythema [Not Recovered/Not Resolved]
  - Feeling abnormal [Not Recovered/Not Resolved]
  - Psoriasis [Not Recovered/Not Resolved]
  - Therapeutic response unexpected [Not Recovered/Not Resolved]
